FAERS Safety Report 19838333 (Version 1)
Quarter: 2021Q3

REPORT INFORMATION
  Report Type: Spontaneous
  Country: US (occurrence: US)
  Receive Date: 20210914
  Receipt Date: 20210914
  Transmission Date: 20211014
  Serious: No
  Sender: FDA-Public Use
  Company Number: None

PATIENT
  Age: 68 Year
  Sex: Male

DRUGS (1)
  1. QUETIAPINE (QUETIAPINE FUMARATE 100MG TAB) [Suspect]
     Active Substance: QUETIAPINE FUMARATE
     Indication: DEPRESSION
     Dates: start: 20200910, end: 20210909

REACTIONS (2)
  - Suicidal ideation [None]
  - Sedation [None]

NARRATIVE: CASE EVENT DATE: 20210909
